FAERS Safety Report 9188993 (Version 1)
Quarter: 2013Q1

REPORT INFORMATION
  Report Type: Spontaneous
  Country: US (occurrence: US)
  Receive Date: 20130326
  Receipt Date: 20130326
  Transmission Date: 20140127
  Serious: No
  Sender: FDA-Public Use
  Company Number: US-009507513-1303USA011711

PATIENT
  Sex: 0

DRUGS (1)
  1. AZASITE [Suspect]
     Dosage: 1 GTT BID FOR 2 DAYS AND 1 GTT QD FOR NEXT 5 DAYS
     Route: 047
     Dates: start: 20130319

REACTIONS (3)
  - Drug dose omission [Unknown]
  - Incorrect storage of drug [Unknown]
  - No adverse event [Unknown]
